FAERS Safety Report 14665172 (Version 1)
Quarter: 2018Q1

REPORT INFORMATION
  Report Type: Spontaneous
  Country: US (occurrence: US)
  Receive Date: 20180320
  Receipt Date: 20180320
  Transmission Date: 20180509
  Serious: Yes (Other)
  Sender: FDA-Public Use
  Company Number: None

PATIENT
  Sex: Female

DRUGS (14)
  1. HUMIRA [Suspect]
     Active Substance: ADALIMUMAB
     Indication: RHEUMATOID ARTHRITIS
     Route: 058
     Dates: start: 20140130
  2. DULOXETINE. [Concomitant]
     Active Substance: DULOXETINE
  3. NALTREXONE [Concomitant]
     Active Substance: NALTREXONE
  4. LEVOFLOXACIN. [Concomitant]
     Active Substance: LEVOFLOXACIN
  5. ACETAZOLAMID [Concomitant]
     Active Substance: ACETAZOLAMIDE
  6. MECLIZINE [Concomitant]
     Active Substance: MECLIZINE HYDROCHLORIDE
  7. AMOX/K CLAV [Concomitant]
     Active Substance: AMOXICILLIN\CLAVULANATE POTASSIUM
  8. BISOPROL [Concomitant]
     Active Substance: BISOPROLOL FUMARATE
  9. BUPROPN [Concomitant]
  10. COLCHICINE. [Concomitant]
     Active Substance: COLCHICINE
  11. BUPROPN HCL [Suspect]
     Active Substance: BUPROPION HYDROCHLORIDE
  12. RIZATRIPTAN. [Concomitant]
     Active Substance: RIZATRIPTAN
  13. BOTOX [Suspect]
     Active Substance: ONABOTULINUMTOXINA
     Indication: MUSCULOSKELETAL DISCOMFORT
     Dosage: 200 IU Q3M INTRAMUSCULAR?
     Route: 030
     Dates: start: 20160822
  14. PROCHLORPER [Concomitant]

REACTIONS (3)
  - Drug dose omission [None]
  - Infection [None]
  - Loss of personal independence in daily activities [None]
